FAERS Safety Report 7592183-X (Version None)
Quarter: 2011Q2

REPORT INFORMATION
  Report Type: 
  Country: None (occurrence: None)
  Receive Date: 20110609
  Receipt Date: 20101008
  Transmission Date: 20111010
  Serious: Yes (Other)
  Sender: FDA-Public Use
  Company Number: WAES 1010USA01069

PATIENT
  Age: 72 Year
  Sex: Male
  Weight: 74.3899 kg

DRUGS (8)
  1. ASPIRIN [Concomitant]
  2. FOSAMAX PLUS D [Suspect]
     Indication: OSTEOPOROSIS
     Dosage: 70/2800 MG/WKY/PO
     Route: 048
     Dates: start: 20070202, end: 20081201
  3. FOSAMAX PLUS D [Suspect]
     Indication: OSTEOPENIA
     Dosage: 70/2800 MG/WKY/PO
     Route: 048
     Dates: start: 20070202, end: 20081201
  4. ALENDRONATE SODIUM [Suspect]
     Indication: OSTEOPENIA
     Dosage: 70 MG/WKY/PO
     Route: 048
     Dates: start: 20081201, end: 20090904
  5. CALCIUM (UNSPECIFIED) [Concomitant]
  6. DOCETAXEL (+) TESTOSTERONE [Concomitant]
  7. FOSAMAX [Suspect]
  8. SIMVASTATIN [Concomitant]

REACTIONS (7)
  - OSTEONECROSIS OF JAW [None]
  - PAIN [None]
  - TOOTH DISORDER [None]
  - IMPAIRED HEALING [None]
  - ARTHRITIS [None]
  - HYPERCHOLESTEROLAEMIA [None]
  - PLATELET DISORDER [None]
